FAERS Safety Report 5454081-7 (Version None)
Quarter: 2007Q3

REPORT INFORMATION
  Report Type: 
  Country: None (occurrence: None)
  Receive Date: 20070917
  Receipt Date: 20070709
  Transmission Date: 20080115
  Serious: Yes (Other)
  Sender: FDA-Public Use
  Company Number: US-ASTRAZENECA-2006UW09006

PATIENT
  Age: 45 Year
  Sex: Female

DRUGS (3)
  1. SEROQUEL [Suspect]
     Indication: BIPOLAR DISORDER
     Dosage: 25 MG TO 200 MG
     Route: 048
     Dates: start: 20020501, end: 20050101
  2. RISPERDAL [Suspect]
     Indication: BIPOLAR DISORDER
     Dates: start: 19960101, end: 20030101
  3. ZYPREXA [Suspect]
     Indication: BIPOLAR DISORDER
     Dates: start: 20050101

REACTIONS (1)
  - PANCREATITIS [None]
